FAERS Safety Report 23722974 (Version 1)
Quarter: 2024Q2

REPORT INFORMATION
  Report Type: Spontaneous
  Country: US (occurrence: None)
  Receive Date: 20240408
  Receipt Date: 20240408
  Transmission Date: 20240715
  Serious: No
  Sender: FDA-Public Use
  Company Number: None

PATIENT
  Age: 58 Year
  Sex: Male

DRUGS (1)
  1. PIRFENIDONE [Suspect]
     Active Substance: PIRFENIDONE
     Indication: Bronchitis chronic
     Dosage: FREQUENCY : DAILY;?
     Route: 048
     Dates: start: 20230721, end: 20240320

REACTIONS (1)
  - Nausea [None]

NARRATIVE: CASE EVENT DATE: 20240320
